FAERS Safety Report 5186306-X (Version None)
Quarter: 2006Q4

REPORT INFORMATION
  Report Type: 
  Country: None (occurrence: None)
  Receive Date: 20061220
  Receipt Date: 20061214
  Transmission Date: 20070319
  Serious: Yes (Hospitalization, Other)
  Sender: FDA-Public Use
  Company Number: BR-JNJFOC-20061103160

PATIENT
  Age: 55 Year
  Sex: Female
  Weight: 56 kg

DRUGS (4)
  1. TOPAMAX [Suspect]
     Indication: MIGRAINE PROPHYLAXIS
     Route: 048
  2. ATACAND [Concomitant]
     Indication: HYPERTENSION
  3. SELOZOK [Concomitant]
     Indication: MIGRAINE
  4. FRONTAL [Concomitant]
     Indication: MIGRAINE

REACTIONS (6)
  - ABDOMINAL DISCOMFORT [None]
  - ABDOMINAL PAIN UPPER [None]
  - ANOREXIA [None]
  - CHOLELITHIASIS [None]
  - MUSCLE SPASMS [None]
  - WEIGHT DECREASED [None]
